FAERS Safety Report 24607067 (Version 1)
Quarter: 2024Q4

REPORT INFORMATION
  Report Type: Spontaneous
  Country: US (occurrence: None)
  Receive Date: 20241108
  Receipt Date: 20241108
  Transmission Date: 20250115
  Serious: Yes (Life-Threatening)
  Sender: Public
  Company Number: None

PATIENT
  Age: 79 Year
  Sex: Male
  Weight: 60 kg

DRUGS (2)
  1. CEFEPIME HYDROCHLORIDE [Suspect]
     Active Substance: CEFEPIME HYDROCHLORIDE
     Indication: Endocarditis
     Dosage: FREQUENCY : TWICE A DAY;?
     Route: 042
     Dates: start: 20240711, end: 20240716
  2. VANCOMYCIN [Suspect]
     Active Substance: VANCOMYCIN

REACTIONS (5)
  - Confusional state [None]
  - Delirium [None]
  - General physical health deterioration [None]
  - Hyporesponsive to stimuli [None]
  - Therapy cessation [None]

NARRATIVE: CASE EVENT DATE: 20240714
